FAERS Safety Report 13902328 (Version 3)
Quarter: 2018Q1

REPORT INFORMATION
  Report Type: Report from Study
  Country: IT (occurrence: IT)
  Receive Date: 20170824
  Receipt Date: 20180301
  Transmission Date: 20180508
  Serious: Yes (Other)
  Sender: FDA-Public Use
  Company Number: IT-ACCORD-056698

PATIENT
  Age: 76 Year
  Sex: Female

DRUGS (2)
  1. DENOSUMAB [Concomitant]
     Active Substance: DENOSUMAB
     Dates: start: 20161129, end: 20161213
  2. LETROZOLE. [Suspect]
     Active Substance: LETROZOLE
     Indication: BREAST CANCER
     Route: 048
     Dates: start: 20170223

REACTIONS (8)
  - Nausea [Not Recovered/Not Resolved]
  - Metastases to lymph nodes [Not Recovered/Not Resolved]
  - Abdominal pain upper [Not Recovered/Not Resolved]
  - Presyncope [Not Recovered/Not Resolved]
  - Spinal pain [Not Recovered/Not Resolved]
  - Thrombocytopenia [Not Recovered/Not Resolved]
  - Metastases to bone [Not Recovered/Not Resolved]
  - Vena cava injury [Not Recovered/Not Resolved]

NARRATIVE: CASE EVENT DATE: 20170621
